FAERS Safety Report 5491965-8 (Version None)
Quarter: 2007Q4

REPORT INFORMATION
  Report Type: 
  Country: None (occurrence: None)
  Receive Date: 20071022
  Receipt Date: 20071015
  Transmission Date: 20080405
  Serious: Yes (Other)
  Sender: FDA-Public Use
  Company Number: A0659957A

PATIENT
  Age: 67 Year
  Sex: Male
  Weight: 142.7 kg

DRUGS (10)
  1. AVANDIA [Suspect]
     Dosage: 8MG PER DAY
     Route: 048
     Dates: start: 19990101, end: 20070101
  2. NOVOLIN R [Concomitant]
     Dosage: 30U TWICE PER DAY
     Route: 058
  3. GLIPIZIDE [Concomitant]
     Dosage: 10MG TWICE PER DAY
     Route: 048
  4. METFORMIN HCL [Concomitant]
     Dosage: 850MG TWICE PER DAY
     Route: 048
  5. DIOVAN [Concomitant]
     Dosage: 160MG PER DAY
     Route: 048
  6. HYDROCHLOROTHIAZIDE [Concomitant]
     Dosage: 12.5MG PER DAY
     Route: 048
  7. NIACIN [Concomitant]
     Dosage: 500MG PER DAY
     Route: 048
  8. PROSCAR [Concomitant]
     Dosage: 5MG PER DAY
     Route: 048
  9. CRESTOR [Concomitant]
     Dosage: 10MG PER DAY
     Route: 048
  10. DIGITEK [Concomitant]

REACTIONS (5)
  - ATRIAL FIBRILLATION [None]
  - DYSPNOEA [None]
  - FATIGUE [None]
  - VENTRICULAR EXTRASYSTOLES [None]
  - VENTRICULAR TACHYCARDIA [None]
